FAERS Safety Report 18419762 (Version 9)
Quarter: 2022Q3

REPORT INFORMATION
  Report Type: Other
  Country: DE (occurrence: None)
  Receive Date: 20201023
  Receipt Date: 20220713
  Transmission Date: 20221027
  Serious: Yes (Hospitalization)
  Sender: FDA-Public Use
  Company Number: DE-ROCHE-2332659

PATIENT
  Age: 48 Year
  Sex: Female
  Weight: 74 kg

DRUGS (25)
  1. OCREVUS [Suspect]
     Active Substance: OCRELIZUMAB
     Indication: Relapsing-remitting multiple sclerosis
     Route: 042
     Dates: start: 20190429
  2. OCREVUS [Suspect]
     Active Substance: OCRELIZUMAB
     Route: 042
     Dates: start: 20190513
  3. OCREVUS [Suspect]
     Active Substance: OCRELIZUMAB
     Route: 042
     Dates: start: 20200430
  4. OCREVUS [Suspect]
     Active Substance: OCRELIZUMAB
     Route: 042
     Dates: start: 20210414
  5. COVID-19 VACCINE NOS [Suspect]
     Active Substance: COVID-19 VACCINE NOS
     Indication: COVID-19 prophylaxis
     Route: 065
  6. JARDIANCE [Concomitant]
     Active Substance: EMPAGLIFLOZIN
  7. SITAGLIPTIN PHOSPHATE [Concomitant]
     Active Substance: SITAGLIPTIN PHOSPHATE
  8. LANTUS [Concomitant]
     Active Substance: INSULIN GLARGINE
     Dosage: 100E/ML
  9. LEVOTHYROXINE SODIUM [Concomitant]
     Active Substance: LEVOTHYROXINE SODIUM
  10. LEVOTHYROXINE SODIUM [Concomitant]
     Active Substance: LEVOTHYROXINE SODIUM
  11. LEVOTHYROXINE SODIUM [Concomitant]
     Active Substance: LEVOTHYROXINE SODIUM
  12. PANTOPRAZOLE SODIUM [Concomitant]
     Active Substance: PANTOPRAZOLE SODIUM
  13. ASPIRIN [Concomitant]
     Active Substance: ASPIRIN
  14. ENALAPRIL [Concomitant]
     Active Substance: ENALAPRIL
     Dosage: DAYS?10-0-0.5 MG
  15. ENALAPRIL [Concomitant]
     Active Substance: ENALAPRIL
     Dosage: 10-0-5 MG
  16. OPIPRAMOL [Concomitant]
     Active Substance: OPIPRAMOL
  17. LYRICA [Concomitant]
     Active Substance: PREGABALIN
     Dosage: UP TO 4 TABLETS A DAY IF NEEDED
  18. LYRICA [Concomitant]
     Active Substance: PREGABALIN
     Dosage: UP TO 6 TABLETS A DAY IF NEEDED
  19. ATORVASTATIN [Concomitant]
     Active Substance: ATORVASTATIN
  20. INSULIN GLARGINE [Concomitant]
     Active Substance: INSULIN GLARGINE
     Dosage: 4-6 IU (INSULIN)
  21. TRULICITY [Concomitant]
     Active Substance: DULAGLUTIDE
  22. VITAMIN D3 [Concomitant]
     Active Substance: CHOLECALCIFEROL
     Dosage: DAYS
  23. ANAESTHESULF [Concomitant]
  24. ACYCLOVIR [Concomitant]
     Active Substance: ACYCLOVIR
  25. ILON [Concomitant]

REACTIONS (47)
  - Sepsis [Recovered/Resolved]
  - Biliary colic [Recovered/Resolved]
  - Meningitis viral [Recovered/Resolved]
  - Meningism [Unknown]
  - Arthropod bite [Recovered/Resolved]
  - Blood glucose increased [Recovered/Resolved]
  - Paraesthesia [Recovered/Resolved]
  - Pruritus [Recovering/Resolving]
  - Urticaria [Recovering/Resolving]
  - Injection site nodule [Recovered/Resolved]
  - Oropharyngeal pain [Recovered/Resolved]
  - Muscular weakness [Recovered/Resolved]
  - Allergy to arthropod sting [Recovered/Resolved]
  - Fatigue [Recovered/Resolved]
  - Muscle spasticity [Recovered/Resolved]
  - Drug ineffective [Unknown]
  - Sensory disturbance [Not Recovered/Not Resolved]
  - Spinal pain [Recovered/Resolved]
  - Eyelids pruritus [Recovered/Resolved]
  - Erythema of eyelid [Recovered/Resolved]
  - Blepharitis [Recovered/Resolved]
  - Eyelid skin dryness [Recovered/Resolved]
  - Eyelid irritation [Recovered/Resolved]
  - Hypotonia [Recovered/Resolved]
  - Herpes zoster [Recovered/Resolved]
  - Oral candidiasis [Recovered/Resolved]
  - Vulvovaginal mycotic infection [Recovered/Resolved]
  - Herpes simplex [Not Recovered/Not Resolved]
  - Cystitis noninfective [Recovered/Resolved]
  - Gastrointestinal infection [Recovered/Resolved]
  - Irritable bowel syndrome [Not Recovered/Not Resolved]
  - Herpes zoster [Not Recovered/Not Resolved]
  - Oral herpes [Not Recovered/Not Resolved]
  - Visual impairment [Not Recovered/Not Resolved]
  - Balance disorder [Not Recovered/Not Resolved]
  - Polyglandular autoimmune syndrome type I [Unknown]
  - Diarrhoea [Recovering/Resolving]
  - Abdominal pain upper [Unknown]
  - Gastrointestinal pain [Unknown]
  - Pancreatic enzymes increased [Unknown]
  - Heavy menstrual bleeding [Unknown]
  - Gastrointestinal tract irritation [Recovering/Resolving]
  - Herpes zoster [Recovered/Resolved]
  - Visual impairment [Not Recovered/Not Resolved]
  - Lyme disease [Not Recovered/Not Resolved]
  - Balance disorder [Not Recovered/Not Resolved]
  - Bladder prolapse [Not Recovered/Not Resolved]

NARRATIVE: CASE EVENT DATE: 20190429
